FAERS Safety Report 13275719 (Version 1)
Quarter: 2017Q1

REPORT INFORMATION
  Report Type: Spontaneous
  Country: US (occurrence: US)
  Receive Date: 20170228
  Receipt Date: 20170228
  Transmission Date: 20170428
  Serious: No
  Sender: FDA-Public Use
  Company Number: US-ASTRAZENECA-2017SE20437

PATIENT
  Age: 886 Month
  Sex: Female
  Weight: 79.4 kg

DRUGS (10)
  1. DULOXETINE. [Concomitant]
     Active Substance: DULOXETINE
     Indication: ANXIETY
     Route: 048
  2. BRILINTA [Suspect]
     Active Substance: TICAGRELOR
     Indication: STENT PLACEMENT
     Route: 048
     Dates: start: 201606
  3. ASPIRIN. [Concomitant]
     Active Substance: ASPIRIN
     Indication: CARDIAC DISORDER
     Route: 048
     Dates: start: 1991
  4. LANSOPRAZOLE. [Concomitant]
     Active Substance: LANSOPRAZOLE
     Indication: GASTROINTESTINAL DISORDER
     Route: 048
  5. ISOSORBIDE. [Concomitant]
     Active Substance: ISOSORBIDE
     Indication: CARDIAC DISORDER
     Route: 048
     Dates: start: 2015
  6. TOPROL XL [Suspect]
     Active Substance: METOPROLOL SUCCINATE
     Indication: CARDIAC DISORDER
     Route: 048
     Dates: start: 201606
  7. RANEXA [Concomitant]
     Active Substance: RANOLAZINE
     Indication: CARDIAC DISORDER
     Route: 048
  8. KLONOPIN [Concomitant]
     Active Substance: CLONAZEPAM
     Indication: NERVOUS SYSTEM DISORDER
     Route: 048
  9. ATORVASTATIN [Concomitant]
     Active Substance: ATORVASTATIN
     Indication: BLOOD CHOLESTEROL ABNORMAL
     Route: 048
  10. DULOXETINE. [Concomitant]
     Active Substance: DULOXETINE
     Indication: DEPRESSION
     Route: 048

REACTIONS (5)
  - Abdominal pain upper [Not Recovered/Not Resolved]
  - Dysgeusia [Not Recovered/Not Resolved]
  - Infection [Unknown]
  - Chromaturia [Not Recovered/Not Resolved]
  - Cardiac failure [Unknown]

NARRATIVE: CASE EVENT DATE: 201606
